FAERS Safety Report 9338962 (Version 1)
Quarter: 2013Q2

REPORT INFORMATION
  Report Type: Spontaneous
  Country: US (occurrence: None)
  Receive Date: 20130529
  Receipt Date: 20130529
  Transmission Date: 20140414
  Serious: Yes (Hospitalization)
  Sender: FDA-Public Use
  Company Number: 2013036204

PATIENT
  Age: 69 Year
  Sex: Male

DRUGS (4)
  1. IMMUNOGLOBULIN [Suspect]
     Indication: IDIOPATHIC THROMBOCYTOPENIC PURPURA
  2. IMMUNOGLOBULIN [Suspect]
     Indication: EPISTAXIS
  3. DEXAMETHASONE (DEXAMETHASONE) [Suspect]
     Indication: IDIOPATHIC THROMBOCYTOPENIC PURPURA
  4. DEXAMETHASONE (DEXAMETHASONE) [Suspect]
     Indication: EPISTAXIS

REACTIONS (2)
  - Bronchopulmonary aspergillosis [None]
  - Ecchymosis [None]
